FAERS Safety Report 18927598 (Version 1)
Quarter: 2021Q1

REPORT INFORMATION
  Report Type: Spontaneous
  Country: US (occurrence: US)
  Receive Date: 20210222
  Receipt Date: 20210222
  Transmission Date: 20210420
  Serious: Yes (Hospitalization)
  Sender: FDA-Public Use
  Company Number: None

PATIENT
  Age: 29 Year
  Sex: Female
  Weight: 89.4 kg

DRUGS (11)
  1. HUMIRA [Concomitant]
     Active Substance: ADALIMUMAB
  2. DIAZEPAM. [Concomitant]
     Active Substance: DIAZEPAM
  3. BUTALBITAL?ASPIRIN?CAFFEINECODEINE [Concomitant]
  4. DESOGESTREL?ETHINYL ESTRADIOL [Concomitant]
     Active Substance: DESOGESTREL\ETHINYL ESTRADIOL
  5. BUDESONIDE. [Concomitant]
     Active Substance: BUDESONIDE
  6. OMEPRAZOLE. [Concomitant]
     Active Substance: OMEPRAZOLE
  7. HUMIRA [Suspect]
     Active Substance: ADALIMUMAB
  8. SUCRALFATE. [Concomitant]
     Active Substance: SUCRALFATE
  9. AZATHIOPRINE. [Concomitant]
     Active Substance: AZATHIOPRINE
  10. RIZATRIPTAN. [Concomitant]
     Active Substance: RIZATRIPTAN
  11. PREDNISONE. [Concomitant]
     Active Substance: PREDNISONE

REACTIONS (1)
  - Intestinal fistula [None]
